FAERS Safety Report 7271143-2 (Version None)
Quarter: 2011Q1

REPORT INFORMATION
  Report Type: 
  Country: None (occurrence: None)
  Receive Date: 20110202
  Receipt Date: 20101222
  Transmission Date: 20110831
  Serious: Yes (Death, Other)
  Sender: FDA-Public Use
  Company Number: US-BAXTER-2009BH016671

PATIENT
  Age: 46 Year
  Sex: Male

DRUGS (71)
  1. HEPARIN SODIUM INJECTION [Suspect]
     Indication: SPLENIC VEIN THROMBOSIS
     Route: 040
     Dates: start: 20071011, end: 20071011
  2. HEPARIN SODIUM INJECTION [Suspect]
     Route: 040
     Dates: start: 20071012, end: 20071012
  3. HEPARIN SODIUM INJECTION [Suspect]
     Route: 040
     Dates: start: 20071013, end: 20071013
  4. HEPARIN SODIUM INJECTION [Suspect]
     Route: 040
     Dates: start: 20071013, end: 20071013
  5. HEPARIN SODIUM INJECTION [Suspect]
     Route: 040
     Dates: start: 20071014, end: 20071014
  6. HEPARIN SODIUM INJECTION [Suspect]
     Route: 040
     Dates: start: 20071014, end: 20071014
  7. HEPARIN SODIUM 5,000 UNITS IN DEXTROSE 5% [Suspect]
     Route: 041
     Dates: start: 20071007, end: 20071008
  8. HEPARIN SODIUM 5,000 UNITS IN DEXTROSE 5% [Suspect]
     Route: 041
     Dates: start: 20071007, end: 20071008
  9. HEPARIN SODIUM 5,000 UNITS IN DEXTROSE 5% [Suspect]
     Route: 041
     Dates: start: 20071008, end: 20071008
  10. HEPARIN SODIUM 5,000 UNITS IN DEXTROSE 5% [Suspect]
     Route: 041
     Dates: start: 20071009, end: 20071009
  11. HEPARIN SODIUM 5,000 UNITS IN DEXTROSE 5% [Suspect]
     Route: 041
     Dates: start: 20071009, end: 20071009
  12. HEPARIN SODIUM 5,000 UNITS IN DEXTROSE 5% [Suspect]
     Route: 041
     Dates: start: 20071010, end: 20071011
  13. HEPARIN SODIUM 5,000 UNITS IN DEXTROSE 5% [Suspect]
     Route: 041
     Dates: start: 20071013, end: 20071014
  14. HEPARIN SODIUM 10,000 UNITS IN SODIUM CHLORIDE 0.45% [Suspect]
     Indication: PRODUCT USED FOR UNKNOWN INDICATION
     Route: 065
  15. PANTOPRAZOLE [Concomitant]
     Indication: PRODUCT USED FOR UNKNOWN INDICATION
     Route: 065
  16. HEPARIN SODIUM INJECTION [Suspect]
     Indication: MESENTERIC VEIN THROMBOSIS
     Route: 040
     Dates: start: 20071011, end: 20071011
  17. HEPARIN SODIUM 5,000 UNITS IN DEXTROSE 5% [Suspect]
     Route: 041
     Dates: start: 20071006, end: 20071006
  18. HEPARIN SODIUM 5,000 UNITS IN DEXTROSE 5% [Suspect]
     Route: 041
     Dates: start: 20071007, end: 20071007
  19. HEPARIN SODIUM 5,000 UNITS IN DEXTROSE 5% [Suspect]
     Route: 041
     Dates: start: 20071008, end: 20071008
  20. HEPARIN SODIUM 5,000 UNITS IN DEXTROSE 5% [Suspect]
     Route: 041
     Dates: start: 20071008, end: 20071008
  21. FLAGYL [Concomitant]
     Indication: PRODUCT USED FOR UNKNOWN INDICATION
     Route: 065
  22. HEPARIN SODIUM 5,000 UNITS IN DEXTROSE 5% [Suspect]
     Route: 041
     Dates: start: 20071007, end: 20071007
  23. HEPARIN SODIUM 5,000 UNITS IN DEXTROSE 5% [Suspect]
     Route: 041
     Dates: start: 20071009, end: 20071010
  24. HEPARIN SODIUM 5,000 UNITS IN DEXTROSE 5% [Suspect]
     Route: 041
     Dates: start: 20071009, end: 20071010
  25. HEPARIN SODIUM 5,000 UNITS IN DEXTROSE 5% [Suspect]
     Route: 041
     Dates: start: 20071012, end: 20071012
  26. HEPARIN SODIUM 5,000 UNITS IN DEXTROSE 5% [Suspect]
     Route: 041
     Dates: start: 20071012, end: 20071012
  27. HEPARIN SODIUM 5,000 UNITS IN DEXTROSE 5% [Suspect]
     Route: 041
     Dates: start: 20071014, end: 20071016
  28. HEPARIN SODIUM 5,000 UNITS IN DEXTROSE 5% [Suspect]
     Route: 041
     Dates: start: 20071014, end: 20071016
  29. ALBUMIN (HUMAN) [Concomitant]
     Indication: PRODUCT USED FOR UNKNOWN INDICATION
     Route: 065
  30. HEPARIN SODIUM INJECTION [Suspect]
     Route: 065
     Dates: start: 20070901, end: 20070901
  31. HEPARIN SODIUM INJECTION [Suspect]
     Route: 040
     Dates: start: 20071013, end: 20071013
  32. HEPARIN SODIUM 5,000 UNITS IN DEXTROSE 5% [Suspect]
     Indication: SPLENIC VEIN THROMBOSIS
     Route: 041
     Dates: start: 20071004, end: 20071005
  33. HEPARIN SODIUM 5,000 UNITS IN DEXTROSE 5% [Suspect]
     Route: 041
     Dates: start: 20071007, end: 20071007
  34. HEPARIN SODIUM 5,000 UNITS IN DEXTROSE 5% [Suspect]
     Route: 041
     Dates: start: 20071008, end: 20071008
  35. HEPARIN SODIUM 5,000 UNITS IN DEXTROSE 5% [Suspect]
     Route: 041
     Dates: start: 20071009, end: 20071009
  36. HEPARIN SODIUM 5,000 UNITS IN DEXTROSE 5% [Suspect]
     Route: 041
     Dates: start: 20071013, end: 20071013
  37. HEPARIN SODIUM 5,000 UNITS IN DEXTROSE 5% [Suspect]
     Route: 041
     Dates: start: 20071014, end: 20071014
  38. HEPARIN SODIUM 5,000 UNITS IN DEXTROSE 5% [Suspect]
     Route: 041
     Dates: start: 20071014, end: 20071014
  39. HEPARIN SODIUM INJECTION [Suspect]
     Route: 065
     Dates: start: 20070901, end: 20070901
  40. HEPARIN SODIUM INJECTION [Suspect]
     Route: 065
  41. HEPARIN SODIUM INJECTION [Suspect]
     Route: 040
     Dates: start: 20071014, end: 20071014
  42. HEPARIN SODIUM 5,000 UNITS IN DEXTROSE 5% [Suspect]
     Indication: MESENTERIC VEIN THROMBOSIS
     Route: 041
     Dates: start: 20071004, end: 20071005
  43. HEPARIN SODIUM 5,000 UNITS IN DEXTROSE 5% [Suspect]
     Route: 041
     Dates: start: 20071006, end: 20071007
  44. HEPARIN SODIUM 5,000 UNITS IN DEXTROSE 5% [Suspect]
     Route: 041
     Dates: start: 20071008, end: 20071008
  45. HEPARIN SODIUM 5,000 UNITS IN DEXTROSE 5% [Suspect]
     Route: 041
     Dates: start: 20071013, end: 20071013
  46. HEPARIN SODIUM 5,000 UNITS IN DEXTROSE 5% [Suspect]
     Route: 041
     Dates: start: 20071014, end: 20071014
  47. HEPARIN SODIUM INJECTION [Suspect]
     Route: 040
     Dates: start: 20071012, end: 20071012
  48. HEPARIN SODIUM INJECTION [Suspect]
     Route: 040
     Dates: start: 20071013, end: 20071013
  49. HEPARIN SODIUM 5,000 UNITS IN DEXTROSE 5% [Suspect]
     Route: 041
     Dates: start: 20071006, end: 20071006
  50. HEPARIN SODIUM 5,000 UNITS IN DEXTROSE 5% [Suspect]
     Route: 041
     Dates: start: 20071006, end: 20071007
  51. HEPARIN SODIUM 5,000 UNITS IN DEXTROSE 5% [Suspect]
     Route: 041
     Dates: start: 20071011, end: 20071012
  52. HEPARIN SODIUM 5,000 UNITS IN DEXTROSE 5% [Suspect]
     Route: 041
     Dates: start: 20071013, end: 20071013
  53. HEPARIN SODIUM 5,000 UNITS IN DEXTROSE 5% [Suspect]
     Route: 041
     Dates: start: 20071014, end: 20071014
  54. NYSTATIN [Concomitant]
     Indication: PRODUCT USED FOR UNKNOWN INDICATION
     Route: 061
  55. MERIDINE [Concomitant]
     Indication: PRODUCT USED FOR UNKNOWN INDICATION
     Route: 065
  56. HEPARIN SODIUM INJECTION [Suspect]
     Route: 065
  57. HEPARIN SODIUM INJECTION [Suspect]
     Route: 040
     Dates: start: 20071014, end: 20071014
  58. HEPARIN SODIUM 5,000 UNITS IN DEXTROSE 5% [Suspect]
     Route: 041
     Dates: start: 20071007, end: 20071007
  59. HEPARIN SODIUM 5,000 UNITS IN DEXTROSE 5% [Suspect]
     Route: 041
     Dates: start: 20071008, end: 20071008
  60. HEPARIN SODIUM 5,000 UNITS IN DEXTROSE 5% [Suspect]
     Route: 041
     Dates: start: 20071010, end: 20071011
  61. HEPARIN SODIUM 5,000 UNITS IN DEXTROSE 5% [Suspect]
     Route: 041
     Dates: start: 20071013, end: 20071014
  62. HEPARIN SODIUM 5,000 UNITS IN DEXTROSE 5% [Suspect]
     Route: 041
     Dates: start: 20071014, end: 20071014
  63. HEPARIN SODIUM 5,000 UNITS IN DEXTROSE 5% [Suspect]
     Route: 041
     Dates: start: 20071014, end: 20071014
  64. HEPARIN SODIUM 1,000 UNITS AND SODIUM CHLORIDE 0.9% [Suspect]
     Indication: PRODUCT USED FOR UNKNOWN INDICATION
     Route: 065
  65. HEPARIN SODIUM INJECTION [Suspect]
     Route: 042
     Dates: start: 20070928, end: 20071026
  66. ASCORBIC ACID [Concomitant]
     Indication: PRODUCT USED FOR UNKNOWN INDICATION
     Route: 065
  67. HEPARIN SODIUM 5,000 UNITS IN DEXTROSE 5% [Suspect]
     Route: 041
     Dates: start: 20071009, end: 20071009
  68. HEPARIN SODIUM 5,000 UNITS IN DEXTROSE 5% [Suspect]
     Route: 041
     Dates: start: 20071011, end: 20071012
  69. HEPARIN SODIUM 5,000 UNITS IN DEXTROSE 5% [Suspect]
     Route: 041
     Dates: start: 20071013, end: 20071013
  70. HEPARIN SODIUM INJECTION [Suspect]
     Indication: CENTRAL VENOUS CATHETERISATION
     Route: 042
     Dates: start: 20070921
  71. THIAMINE [Concomitant]
     Indication: PRODUCT USED FOR UNKNOWN INDICATION
     Route: 065

REACTIONS (14)
  - DYSPNOEA [None]
  - HEPATIC CIRRHOSIS [None]
  - HEPATORENAL SYNDROME [None]
  - JAUNDICE [None]
  - BLOOD PRESSURE DECREASED [None]
  - ERYTHEMA [None]
  - HEPATIC FAILURE [None]
  - ORGAN FAILURE [None]
  - INTESTINAL FUNCTIONAL DISORDER [None]
  - CARDIAC DISORDER [None]
  - RESPIRATORY FAILURE [None]
  - ABDOMINAL PAIN [None]
  - SWELLING [None]
  - ABDOMINAL COMPARTMENT SYNDROME [None]
